FAERS Safety Report 7040435-4 (Version None)
Quarter: 2010Q4

REPORT INFORMATION
  Report Type: 
  Country: None (occurrence: None)
  Receive Date: 20101012
  Receipt Date: 20101001
  Transmission Date: 20110411
  Serious: Yes (Hospitalization)
  Sender: FDA-Public Use
  Company Number: JP-MERCK-1008USA03901

PATIENT
  Age: 75 Year
  Sex: Female
  Weight: 44 kg

DRUGS (19)
  1. JANUVIA [Suspect]
     Indication: DIABETES MELLITUS
     Route: 048
     Dates: start: 20100324, end: 20100820
  2. ASPIRIN [Concomitant]
     Indication: MYOCARDIAL ISCHAEMIA
     Route: 048
     Dates: start: 20030101
  3. BLOPRESS [Concomitant]
     Indication: HYPERTENSION
     Route: 048
     Dates: start: 20100422
  4. AMARYL [Concomitant]
     Indication: DIABETES MELLITUS
     Route: 048
     Dates: start: 20100421
  5. VITANEURIN (FURSULTIAMINE (+) HYDROXOCOBALAMIN ACETATE (+) PYRIDOXAL P [Concomitant]
     Indication: HYPOVITAMINOSIS
     Route: 048
     Dates: start: 20040101
  6. HICEE [Concomitant]
     Indication: HYPOVITAMINOSIS
     Route: 048
     Dates: start: 20040101
  7. JUVELA [Concomitant]
     Indication: PERIPHERAL CIRCULATORY FAILURE
     Route: 048
     Dates: start: 20040101
  8. HERBESSER R [Concomitant]
     Indication: MYOCARDIAL ISCHAEMIA
     Route: 048
     Dates: start: 20030101
  9. ARTIST [Concomitant]
     Indication: MYOCARDIAL ISCHAEMIA
     Route: 048
     Dates: start: 20030101
  10. MAGNESIUM OXIDE [Concomitant]
     Indication: CONSTIPATION
     Route: 048
     Dates: start: 20020101
  11. LAC-B [Concomitant]
     Indication: CONSTIPATION
     Dosage: DIVIDED DOSE FREQUENCY IS UNKNOWN
     Route: 048
     Dates: start: 20020101
  12. PROMAC [Concomitant]
     Indication: ZINC DEFICIENCY
     Route: 048
     Dates: start: 20091218
  13. DEPAS [Concomitant]
     Indication: NEUROSIS
     Route: 048
     Dates: start: 20020101
  14. KINEDAK [Concomitant]
     Indication: DIABETIC NEUROPATHY
     Route: 048
     Dates: start: 20020604
  15. MEVALOTIN [Concomitant]
     Indication: HYPERLIPIDAEMIA
     Route: 048
     Dates: start: 20020604
  16. MYSLEE [Concomitant]
     Indication: INSOMNIA
     Route: 048
     Dates: start: 20020101
  17. ALOSENN [Concomitant]
     Indication: CONSTIPATION
     Route: 048
     Dates: start: 20020101
  18. ANPLAG [Concomitant]
     Indication: ARTERIOSCLEROSIS OBLITERANS
     Route: 048
     Dates: start: 20040101
  19. NEUQUINON [Concomitant]
     Indication: CARDIAC FAILURE
     Route: 048
     Dates: start: 20060101

REACTIONS (3)
  - HYPONATRAEMIA [None]
  - OEDEMA [None]
  - WATER INTOXICATION [None]
